FAERS Safety Report 4417198-1 (Version None)
Quarter: 2004Q3

REPORT INFORMATION
  Report Type: 
  Country: None (occurrence: None)
  Receive Date: 20040806
  Receipt Date: 20040730
  Transmission Date: 20050211
  Serious: Yes (Hospitalization)
  Sender: FDA-Public Use
  Company Number: US-BRISTOL-MYERS SQUIBB COMPANY-12656658

PATIENT
  Age: 39 Year
  Sex: Female

DRUGS (2)
  1. KENALOG [Suspect]
     Dosage: DOSE RANGE:  60-80 MG, EACH AT 2 WEEK INTERVALS
     Route: 008
  2. LIDOCAINE [Suspect]

REACTIONS (2)
  - INTRACRANIAL HYPOTENSION [None]
  - MENINGEAL NEOPLASM [None]
